FAERS Safety Report 5342237-3 (Version None)
Quarter: 2007Q2

REPORT INFORMATION
  Report Type: 
  Country: None (occurrence: None)
  Receive Date: 20070412
  Receipt Date: 20070208
  Transmission Date: 20071010
  Serious: No
  Sender: FDA-Public Use
  Company Number: IPX00023

PATIENT
  Age: 11 Year
  Sex: Male
  Weight: 24 kg

DRUGS (1)
  1. IPLEX [Suspect]
     Indication: INSULIN-LIKE GROWTH FACTOR DECREASED
     Dosage: 36 MG/DAILY/SC
     Route: 058
     Dates: start: 20060714

REACTIONS (1)
  - ORAL NEOPLASM BENIGN [None]
